FAERS Safety Report 4819847-2 (Version None)
Quarter: 2005Q4

REPORT INFORMATION
  Report Type: 
  Country: None (occurrence: None)
  Receive Date: 20051102
  Receipt Date: 20051024
  Transmission Date: 20060501
  Serious: Yes (Hospitalization)
  Sender: FDA-Public Use
  Company Number: 2005-10-1281

PATIENT
  Age: 36 Year
  Sex: Male
  Weight: 66 kg

DRUGS (1)
  1. CELESTENE (BETAMETHASONE) TABLETS ^LIKE CELESTONE ORAL SOLUTION^ [Suspect]
     Dosage: 4 MG QD ORAL
     Route: 048
     Dates: start: 20030201

REACTIONS (1)
  - GASTRIC ULCER [None]
